FAERS Safety Report 8252093-1 (Version None)
Quarter: 2012Q2

REPORT INFORMATION
  Report Type: 
  Country: None (occurrence: None)
  Receive Date: 20120402
  Receipt Date: 20110614
  Transmission Date: 20120825
  Serious: No
  Sender: FDA-Public Use
  Company Number: US-ABBOTT-11P-163-0732266-00

PATIENT
  Sex: Male

DRUGS (1)
  1. ANDROGEL [Suspect]
     Indication: BLOOD TESTOSTERONE DECREASED

REACTIONS (5)
  - PARAESTHESIA [None]
  - PAIN IN EXTREMITY [None]
  - HYPOAESTHESIA [None]
  - DRUG DOSE OMISSION [None]
  - MYALGIA [None]
